FAERS Safety Report 8272346-0 (Version None)
Quarter: 2012Q1

REPORT INFORMATION
  Report Type: 
  Country: None (occurrence: None)
  Receive Date: 20120314
  Receipt Date: 20100831
  Transmission Date: 20120608
  Serious: No
  Sender: FDA-Public Use
  Company Number: PHEH2010US03594

PATIENT
  Age: 39 Year
  Sex: Female

DRUGS (1)
  1. FANAPT [Suspect]
     Dosage: ORAL
     Route: 048
     Dates: start: 20100801, end: 20100801

REACTIONS (1)
  - HEADACHE [None]
